FAERS Safety Report 25471534 (Version 1)
Quarter: 2025Q2

REPORT INFORMATION
  Report Type: Spontaneous
  Country: US (occurrence: US)
  Receive Date: 20250624
  Receipt Date: 20250624
  Transmission Date: 20250716
  Serious: No
  Sender: GLENMARK
  Company Number: US-GLENMARK PHARMACEUTICALS-2024GMK096211

PATIENT

DRUGS (2)
  1. MUPIROCIN [Suspect]
     Active Substance: MUPIROCIN
     Indication: Penile discomfort
     Route: 061
     Dates: start: 20230711
  2. MUPIROCIN [Suspect]
     Active Substance: MUPIROCIN
     Indication: Dermatitis diaper
     Dosage: UNK UNK, BID (FOR IRRITATION ON THE PENIS)
     Route: 061
     Dates: start: 20240403, end: 20240406

REACTIONS (6)
  - Penile infection [Unknown]
  - Penile swelling [Recovered/Resolved]
  - Urinary tract infection [Unknown]
  - Pain [Unknown]
  - Recalled product administered [Unknown]
  - Product use in unapproved indication [Unknown]
